FAERS Safety Report 7045782-8 (Version None)
Quarter: 2010Q4

REPORT INFORMATION
  Report Type: 
  Country: None (occurrence: None)
  Receive Date: 20101014
  Receipt Date: 20101001
  Transmission Date: 20110411
  Serious: Yes (Hospitalization)
  Sender: FDA-Public Use
  Company Number: DE-ELI_LILLY_AND_COMPANY-DE201010000321

PATIENT
  Age: 71 Year
  Sex: Female
  Weight: 73 kg

DRUGS (9)
  1. CYMBALTA [Suspect]
     Dosage: 30 MG, UNKNOWN
     Route: 048
     Dates: start: 20100716, end: 20100720
  2. CYMBALTA [Suspect]
     Dosage: 60 MG, UNKNOWN
     Route: 048
     Dates: start: 20100721, end: 20100802
  3. CYMBALTA [Suspect]
     Dosage: 90 MG, UNKNOWN
     Route: 048
     Dates: start: 20100803, end: 20100806
  4. CYMBALTA [Suspect]
     Dosage: 120 MG, UNKNOWN
     Route: 048
     Dates: start: 20100806, end: 20100816
  5. NOVALGIN [Concomitant]
     Dosage: 2000 MG, UNK
     Dates: start: 20100609
  6. OXAGESIC [Concomitant]
     Dosage: 15 MG, UNK
     Dates: start: 20100609
  7. MIRTAZAPIN [Concomitant]
     Dosage: 45 MG, UNK
  8. LORAZEPAM [Concomitant]
     Dosage: 1 MG, UNK
     Dates: start: 20100709, end: 20100719
  9. TELMISARTAN [Concomitant]
     Dosage: 1 D/F, UNK
     Dates: start: 20100713

REACTIONS (1)
  - GAMMA-GLUTAMYLTRANSFERASE INCREASED [None]
